FAERS Safety Report 4885865-1 (Version None)
Quarter: 2006Q1

REPORT INFORMATION
  Report Type: 
  Country: None (occurrence: None)
  Receive Date: 20060117
  Receipt Date: 20060104
  Transmission Date: 20060701
  Serious: Yes (Congenital Anomaly, Other)
  Sender: FDA-Public Use
  Company Number: 2006AL000045

PATIENT
  Age: 6 Year
  Sex: Male

DRUGS (4)
  1. CARBAMAZEPINE [Suspect]
     Indication: EPILEPSY
  2. PHENYTOIN [Suspect]
     Indication: EPILEPSY
  3. VALPROIC ACID [Suspect]
     Indication: EPILEPSY
  4. VIGATRABIN [Concomitant]

REACTIONS (4)
  - DRUG EXPOSURE DURING PREGNANCY [None]
  - EPILEPSY [None]
  - MENTAL RETARDATION SEVERITY UNSPECIFIED [None]
  - MULTIPLE CONGENITAL ABNORMALITIES [None]
